FAERS Safety Report 6199202-6 (Version None)
Quarter: 2009Q2

REPORT INFORMATION
  Report Type: 
  Country: None (occurrence: None)
  Receive Date: 20090522
  Receipt Date: 20090520
  Transmission Date: 20091009
  Serious: Yes (Other)
  Sender: FDA-Public Use
  Company Number: IT-ROCHE-633677

PATIENT
  Sex: Male

DRUGS (3)
  1. PEG-INTERFERON ALFA 2A (RO 25-8310) [Suspect]
     Indication: HEPATITIS C
     Route: 058
     Dates: start: 20081031, end: 20090220
  2. RIBAVIRIN [Concomitant]
     Indication: HEPATITIS C
     Route: 048
     Dates: start: 20081031, end: 20090220
  3. TILIA [Concomitant]
     Dosage: DRUG NAME REPORTED AS TILIA EUROPAEA
     Route: 048

REACTIONS (2)
  - EPISTAXIS [None]
  - HAEMOPTYSIS [None]
